FAERS Safety Report 4855936-4 (Version None)
Quarter: 2005Q4

REPORT INFORMATION
  Report Type: 
  Country: None (occurrence: None)
  Receive Date: 20051216
  Receipt Date: 20051213
  Transmission Date: 20060501
  Serious: Yes (Other)
  Sender: FDA-Public Use
  Company Number: NL-GLAXOSMITHKLINE-B0403747A

PATIENT
  Age: 38 Year
  Sex: Female

DRUGS (4)
  1. PAROXETINE HYDROCHLORIDE [Suspect]
     Indication: ANXIETY
     Dosage: 40MG PER DAY
     Dates: start: 20010515
  2. FLUVOXAMINE MALEATE [Concomitant]
     Dosage: 150MG PER DAY
     Dates: start: 20010615
  3. DESOGESTREL AND ETHINYL ESTRADIOL [Concomitant]
     Dates: start: 19850101
  4. ESTROGENIC SUBSTANCE [Concomitant]

REACTIONS (4)
  - ASTHENIA [None]
  - CIRCULATORY COLLAPSE [None]
  - DIZZINESS [None]
  - PANIC REACTION [None]
